FAERS Safety Report 7117097-0 (Version None)
Quarter: 2010Q4

REPORT INFORMATION
  Report Type: 
  Country: None (occurrence: None)
  Receive Date: 20101122
  Receipt Date: 20101110
  Transmission Date: 20110411
  Serious: No
  Sender: FDA-Public Use
  Company Number: US-PFIZER INC-2010147014

PATIENT
  Sex: Female
  Weight: 73 kg

DRUGS (9)
  1. EFFEXOR XR [Suspect]
     Indication: DEPRESSION
     Dosage: 75 MG, 1X/DAY
     Route: 048
     Dates: start: 20081101, end: 20101001
  2. EFFEXOR XR [Suspect]
     Dosage: 37.5 MG, 1X/DAY
     Route: 048
     Dates: start: 20101001
  3. GEODON [Concomitant]
  4. NEXIUM [Concomitant]
  5. RANITIDINE [Concomitant]
  6. CLONAZEPAM [Concomitant]
  7. DIAZEPAM [Concomitant]
  8. CRESTOR [Concomitant]
  9. LISINOPRIL [Concomitant]

REACTIONS (1)
  - BLOOD TEST ABNORMAL [None]
